FAERS Safety Report 13667833 (Version 1)
Quarter: 2017Q2

REPORT INFORMATION
  Report Type: Spontaneous
  Country: US (occurrence: US)
  Receive Date: 20170619
  Receipt Date: 20170619
  Transmission Date: 20170830
  Serious: Yes (Death)
  Sender: FDA-Public Use
  Company Number: None

PATIENT
  Age: 61 Year
  Sex: Male

DRUGS (10)
  1. ASPIRIN. [Concomitant]
     Active Substance: ASPIRIN
  2. RIBASPHERE [Suspect]
     Active Substance: RIBAVIRIN
     Indication: HEPATITIS C
     Route: 048
     Dates: start: 20170323, end: 20170614
  3. ZOCOR [Concomitant]
     Active Substance: SIMVASTATIN
  4. OXYBUTYNIN [Concomitant]
     Active Substance: OXYBUTYNIN
  5. HARVONI [Suspect]
     Active Substance: LEDIPASVIR\SOFOSBUVIR
     Indication: HEPATITIS C
     Route: 048
     Dates: start: 20170201, end: 20170614
  6. ZYPREXA [Concomitant]
     Active Substance: OLANZAPINE
  7. VITAMIN D [Concomitant]
     Active Substance: CHOLECALCIFEROL
  8. TRIUMEQ [Concomitant]
     Active Substance: ABACAVIR SULFATE\DOLUTEGRAVIR SODIUM\LAMIVUDINE
  9. COLACE [Concomitant]
     Active Substance: DOCUSATE SODIUM
  10. LORATADINE. [Concomitant]
     Active Substance: LORATADINE

REACTIONS (1)
  - Death [None]

NARRATIVE: CASE EVENT DATE: 20170614
